FAERS Safety Report 13277112 (Version 1)
Quarter: 2017Q1

REPORT INFORMATION
  Report Type: Spontaneous
  Country: GB (occurrence: GB)
  Receive Date: 20170228
  Receipt Date: 20170228
  Transmission Date: 20170428
  Serious: Yes (Hospitalization)
  Sender: FDA-Public Use
  Company Number: GB-TEVA-743777ACC

PATIENT
  Age: 1 Year
  Sex: Male

DRUGS (5)
  1. PIRITON [Concomitant]
     Active Substance: CHLORPHENIRAMINE MALEATE
  2. PROPRANOLOL [Suspect]
     Active Substance: PROPRANOLOL HYDROCHLORIDE
     Indication: HAEMANGIOMA OF SKIN
     Route: 048
     Dates: start: 201610, end: 20170206
  3. PARACETAMOL [Concomitant]
     Active Substance: ACETAMINOPHEN
  4. RANITIDINE. [Concomitant]
     Active Substance: RANITIDINE
  5. CETOMACROGOL [Concomitant]
     Active Substance: COSMETICS

REACTIONS (2)
  - Respiratory distress [Unknown]
  - Bronchiolitis [Recovering/Resolving]

NARRATIVE: CASE EVENT DATE: 20170206
